FAERS Safety Report 6299211-2 (Version None)
Quarter: 2009Q3

REPORT INFORMATION
  Report Type: 
  Country: None (occurrence: None)
  Receive Date: 20090806
  Receipt Date: 20090803
  Transmission Date: 20100115
  Serious: Yes (Hospitalization)
  Sender: FDA-Public Use
  Company Number: NZ-ASTRAZENECA-2009SE06504

PATIENT
  Age: 937 Month
  Sex: Female

DRUGS (2)
  1. OMEPRAZOLE [Suspect]
     Route: 048
     Dates: start: 19990720, end: 20010216
  2. TEMAZEPAM [Concomitant]
     Route: 048
     Dates: start: 19780101

REACTIONS (4)
  - FALL [None]
  - NAUSEA [None]
  - RENAL FAILURE ACUTE [None]
  - TUBULOINTERSTITIAL NEPHRITIS [None]
